FAERS Safety Report 6372506-X (Version None)
Quarter: 2009Q3

REPORT INFORMATION
  Report Type: 
  Country: None (occurrence: None)
  Receive Date: 20090924
  Receipt Date: 20080925
  Transmission Date: 20100115
  Serious: No
  Sender: FDA-Public Use
  Company Number: US-ASTRAZENECA-2008UW20242

PATIENT
  Age: 38 Year
  Sex: Female

DRUGS (12)
  1. SEROQUEL [Suspect]
     Indication: BIPOLAR DISORDER
     Route: 048
     Dates: start: 20050901
  2. SEROQUEL [Suspect]
     Indication: ANGER
     Route: 048
     Dates: start: 20050901
  3. SEROQUEL [Suspect]
     Indication: DEPRESSION
     Route: 048
     Dates: start: 20050901
  4. ADVAIR HFA [Concomitant]
  5. POLYETHYLENE GLYCOL [Concomitant]
  6. TYLENOL (CAPLET) [Concomitant]
  7. CYCLOBENZAPRINE [Concomitant]
  8. ZANTAC [Concomitant]
  9. PERCOCET [Concomitant]
  10. TRAZODONE HCL [Concomitant]
  11. LAMICTAL [Concomitant]
  12. ATRIPLA [Concomitant]

REACTIONS (5)
  - CONSTIPATION [None]
  - DRUG INEFFECTIVE [None]
  - MUSCLE SPASMS [None]
  - MYALGIA [None]
  - PREMATURE MENOPAUSE [None]
